FAERS Safety Report 13962827 (Version 1)
Quarter: 2017Q3

REPORT INFORMATION
  Report Type: Spontaneous
  Country: CZ (occurrence: CZ)
  Receive Date: 20170913
  Receipt Date: 20170913
  Transmission Date: 20171128
  Serious: Yes (Death, Hospitalization)
  Sender: FDA-Public Use
  Company Number: CZ-B.I. PHARMACEUTICALS,INC./RIDGEFIELD-2017-BI-050134

PATIENT
  Age: 76 Year
  Sex: Male
  Weight: 55 kg

DRUGS (29)
  1. FENTANYL. [Concomitant]
     Active Substance: FENTANYL
     Indication: ENDOSCOPIC RETROGRADE CHOLANGIOPANCREATOGRAPHY
     Route: 042
     Dates: start: 20150313, end: 20150313
  2. PRADAXA [Suspect]
     Active Substance: DABIGATRAN ETEXILATE MESYLATE
     Route: 048
     Dates: start: 20150318, end: 20150406
  3. VEROSPIRON [Concomitant]
     Active Substance: SPIRONOLACTONE
     Indication: CARDIAC FAILURE CHRONIC
  4. ZOFRAN [Concomitant]
     Active Substance: ONDANSETRON HYDROCHLORIDE
     Indication: NAUSEA
     Route: 042
     Dates: end: 20150227
  5. TRAMAL [Concomitant]
     Active Substance: TRAMADOL
     Route: 048
     Dates: end: 20150330
  6. GEMZAR [Concomitant]
     Active Substance: GEMCITABINE HYDROCHLORIDE
     Indication: CHEMOTHERAPY
     Route: 042
     Dates: start: 20130815, end: 20141218
  7. KREON [Concomitant]
     Active Substance: PANCRELIPASE
     Indication: PANCREATIC CARCINOMA
     Route: 048
     Dates: start: 20150316, end: 20150410
  8. TRAMAL [Concomitant]
     Active Substance: TRAMADOL
     Indication: PAIN
     Dosage: ROUTE: ORAL
     Route: 042
     Dates: end: 20150330
  9. FRAXIPARINE [Concomitant]
     Active Substance: NADROPARIN CALCIUM
     Indication: ATRIAL FIBRILLATION
     Route: 058
     Dates: start: 20150314, end: 20150317
  10. BUSCOPAN [Concomitant]
     Active Substance: BUTYLSCOPOLAMINE BROMIDE
     Indication: ENDOSCOPIC RETROGRADE CHOLANGIOPANCREATOGRAPHY
     Route: 042
     Dates: start: 20150313, end: 20150325
  11. BUSCOPAN [Concomitant]
     Active Substance: BUTYLSCOPOLAMINE BROMIDE
     Indication: ANALGESIC THERAPY
  12. ZALDIAR [Concomitant]
     Active Substance: ACETAMINOPHEN\TRAMADOL HYDROCHLORIDE
     Indication: PAIN
     Route: 048
     Dates: end: 20150330
  13. LEUKOVORIN [Concomitant]
     Active Substance: LEUCOVORIN SODIUM
     Indication: CHEMOTHERAPY
     Route: 042
     Dates: start: 20150102, end: 20150227
  14. BETALOC [Concomitant]
     Active Substance: METOPROLOL TARTRATE
     Indication: HYPERTENSION
     Route: 048
     Dates: end: 20150406
  15. FURON [Concomitant]
     Active Substance: FUROSEMIDE
     Indication: HYPERTENSION
     Route: 048
     Dates: end: 20150410
  16. FURON [Concomitant]
     Active Substance: FUROSEMIDE
     Indication: CARDIAC FAILURE CHRONIC
  17. DIGOXIN. [Concomitant]
     Active Substance: DIGOXIN
     Indication: CARDIAC FAILURE CHRONIC
     Route: 048
     Dates: end: 20150410
  18. TENSIOMIN [Concomitant]
     Active Substance: CAPTOPRIL
     Indication: HYPERTENSION
     Route: 048
     Dates: start: 20150313, end: 20150313
  19. PRADAXA [Suspect]
     Active Substance: DABIGATRAN ETEXILATE MESYLATE
     Indication: ATRIAL FIBRILLATION
     Route: 048
     Dates: start: 201501, end: 20150313
  20. ESPUMISAN [Concomitant]
     Active Substance: DIMETHICONE
     Indication: ABDOMINAL PAIN
     Route: 048
     Dates: start: 20150316, end: 20150410
  21. MIDAZOLAM [Concomitant]
     Active Substance: MIDAZOLAM HYDROCHLORIDE
     Indication: ENDOSCOPIC RETROGRADE CHOLANGIOPANCREATOGRAPHY
     Route: 042
     Dates: start: 20150313, end: 20150313
  22. KALNORMIN [Concomitant]
     Active Substance: POTASSIUM CHLORIDE
     Indication: HYPOKALAEMIA
     Route: 048
     Dates: start: 20150315, end: 20150315
  23. DOLFORIN [Concomitant]
     Active Substance: FENTANYL
     Indication: PAIN
     Dosage: FORMULATION: PATCHES
     Route: 062
     Dates: start: 20150331, end: 20150406
  24. VEROSPIRON [Concomitant]
     Active Substance: SPIRONOLACTONE
     Indication: HYPERTENSION
     Route: 048
     Dates: end: 20150410
  25. LIDOCAIN [Concomitant]
     Active Substance: LIDOCAINE
     Indication: ENDOSCOPIC RETROGRADE CHOLANGIOPANCREATOGRAPHY
     Dosage: FORMULATION: SPRAY; ROUTE: TOPICAL (THROAT)
     Dates: start: 20150313, end: 20150313
  26. ALGIFEN [Concomitant]
     Indication: PAIN
     Route: 048
     Dates: start: 20150317, end: 20150317
  27. PRESTARIUM NEO [Concomitant]
     Active Substance: PERINDOPRIL ARGININE
     Indication: HYPERTENSION
     Route: 048
     Dates: end: 20150410
  28. FLUOROURACIL. [Concomitant]
     Active Substance: FLUOROURACIL
     Indication: CHEMOTHERAPY
     Route: 042
     Dates: start: 20150102, end: 20150227
  29. NOVALGIN [Concomitant]
     Active Substance: METAMIZOLE SODIUM
     Indication: PAIN
     Route: 042
     Dates: end: 20150325

REACTIONS (2)
  - Pancreatic carcinoma [Fatal]
  - Renal failure [Unknown]

NARRATIVE: CASE EVENT DATE: 20150319
